FAERS Safety Report 6728377-2 (Version None)
Quarter: 2010Q2

REPORT INFORMATION
  Report Type: 
  Country: None (occurrence: None)
  Receive Date: 20100517
  Receipt Date: 20100505
  Transmission Date: 20101027
  Serious: Yes (Other)
  Sender: FDA-Public Use
  Company Number: US-JNJFOC-20100503340

PATIENT
  Age: 5 Year
  Sex: Male

DRUGS (2)
  1. CHILDREN'S TYLENOL [Suspect]
  2. CHILDREN'S TYLENOL [Suspect]
     Indication: DRUG USE FOR UNKNOWN INDICATION

REACTIONS (2)
  - BACTERIAL INFECTION [None]
  - PRODUCT QUALITY ISSUE [None]
